FAERS Safety Report 20626749 (Version 1)
Quarter: 2022Q1

REPORT INFORMATION
  Report Type: Spontaneous
  Country: US (occurrence: None)
  Receive Date: 20220322
  Receipt Date: 20220322
  Transmission Date: 20220423
  Serious: Yes (Hospitalization)
  Sender: FDA-Public Use
  Company Number: None

PATIENT
  Age: 66 Year
  Sex: Male

DRUGS (1)
  1. ABIRATERONE [Suspect]
     Active Substance: ABIRATERONE
     Indication: Product used for unknown indication
     Dosage: OTHER QUANTITY : 250MG; 4 TABS;?FREQUENCY : DAILY;?
     Route: 048
     Dates: start: 202101

REACTIONS (3)
  - Fall [None]
  - Femur fracture [None]
  - Therapy interrupted [None]

NARRATIVE: CASE EVENT DATE: 20220316
